FAERS Safety Report 5014515-9 (Version None)
Quarter: 2006Q2

REPORT INFORMATION
  Report Type: 
  Country: None (occurrence: None)
  Receive Date: 20060531
  Receipt Date: 20060519
  Transmission Date: 20061013
  Serious: Yes (Hospitalization)
  Sender: FDA-Public Use
  Company Number: US-AMGEN-US180240

PATIENT
  Sex: Male

DRUGS (8)
  1. ARANESP [Suspect]
     Indication: ANAEMIA
     Dates: start: 20050810
  2. PHOSLO [Concomitant]
  3. LASIX [Concomitant]
  4. IRON [Concomitant]
  5. ALLOPURINOL [Concomitant]
  6. COUMADIN [Concomitant]
  7. PRAVACHOL [Concomitant]
  8. INSULIN [Concomitant]

REACTIONS (3)
  - FALL [None]
  - HUMERUS FRACTURE [None]
  - INJECTION SITE SWELLING [None]
